FAERS Safety Report 19647663 (Version 1)
Quarter: 2021Q3

REPORT INFORMATION
  Report Type: Spontaneous
  Country: US (occurrence: US)
  Receive Date: 20210802
  Receipt Date: 20210802
  Transmission Date: 20211014
  Serious: No
  Sender: FDA-Public Use
  Company Number: US-PFIZER INC-2021498267

PATIENT
  Age: 66 Year
  Sex: Female
  Weight: 134.72 kg

DRUGS (2)
  1. CHANTIX [Suspect]
     Active Substance: VARENICLINE TARTRATE
     Indication: SMOKING CESSATION THERAPY
     Dosage: UNK, ONE FOR THREE DAYS
     Dates: start: 20210425
  2. CHANTIX [Suspect]
     Active Substance: VARENICLINE TARTRATE
     Dosage: UNK, TWICE DAILY

REACTIONS (4)
  - Dizziness [Unknown]
  - Taste disorder [Not Recovered/Not Resolved]
  - Feeling abnormal [Unknown]
  - Decreased appetite [Unknown]

NARRATIVE: CASE EVENT DATE: 2021
